FAERS Safety Report 17111674 (Version 4)
Quarter: 2022Q3

REPORT INFORMATION
  Report Type: Spontaneous
  Country: US (occurrence: US)
  Receive Date: 20191204
  Receipt Date: 20220921
  Transmission Date: 20221026
  Serious: Yes (Other)
  Sender: FDA-Public Use
  Company Number: US-PFIZER INC-2019524397

PATIENT

DRUGS (14)
  1. PANTOPRAZOLE [Suspect]
     Active Substance: PANTOPRAZOLE
     Indication: Gastrooesophageal reflux disease
     Dosage: 40 MG, 1X/DAY
     Dates: start: 2014
  2. PROTONIX [Suspect]
     Active Substance: PANTOPRAZOLE SODIUM
     Indication: Gastrooesophageal reflux disease
     Dosage: 40 MG, 1X/DAY
     Dates: start: 200701, end: 201708
  3. PROTONIX [Suspect]
     Active Substance: PANTOPRAZOLE SODIUM
     Dosage: 40 MG, 1X/DAY
     Dates: start: 2008, end: 2017
  4. PREVACID [Suspect]
     Active Substance: LANSOPRAZOLE
     Indication: Gastrooesophageal reflux disease
     Dosage: UNK, 1X/DAY
     Dates: start: 2002, end: 2004
  5. PREVACID [Suspect]
     Active Substance: LANSOPRAZOLE
     Dosage: 20 MG, 1X/DAY
     Dates: start: 200701, end: 201708
  6. PREVACID [Suspect]
     Active Substance: LANSOPRAZOLE
     Indication: Gastrooesophageal reflux disease
     Dosage: UNK
     Route: 042
     Dates: start: 200701, end: 201708
  7. PREVACID [Suspect]
     Active Substance: LANSOPRAZOLE
     Dosage: UNK, 1X/DAY
     Route: 042
  8. NEXIUM [Suspect]
     Active Substance: ESOMEPRAZOLE MAGNESIUM
     Indication: Gastrooesophageal reflux disease
     Dosage: UNK, 1X/DAY
     Dates: start: 2004, end: 2008
  9. NEXIUM [Suspect]
     Active Substance: ESOMEPRAZOLE MAGNESIUM
     Dosage: 20 MG, 1X/DAY
     Dates: start: 200701, end: 201708
  10. PRILOSEC [Suspect]
     Active Substance: OMEPRAZOLE MAGNESIUM
     Indication: Gastrooesophageal reflux disease
     Dosage: 20 MG, 1X/DAY
     Dates: start: 200701, end: 201708
  11. PRILOSEC [Suspect]
     Active Substance: OMEPRAZOLE MAGNESIUM
     Dosage: UNK, 1X/DAY
  12. NEXIUM 24HR [Suspect]
     Active Substance: ESOMEPRAZOLE MAGNESIUM
     Indication: Gastrooesophageal reflux disease
     Dosage: 20 MG, 1X/DAY
     Dates: start: 2014, end: 2019
  13. OMEPRAZOLE [Suspect]
     Active Substance: OMEPRAZOLE
     Indication: Gastrooesophageal reflux disease
     Dosage: 40 MG, 1X/DAY
     Dates: start: 2011, end: 2011
  14. OMEPRAZOLE [Suspect]
     Active Substance: OMEPRAZOLE
     Dosage: 20 MG, 1X/DAY
     Dates: start: 2011, end: 2012

REACTIONS (3)
  - Chronic kidney disease [Unknown]
  - End stage renal disease [Unknown]
  - Acute kidney injury [Unknown]
